FAERS Safety Report 7901558-8 (Version None)
Quarter: 2011Q4

REPORT INFORMATION
  Report Type: 
  Country: None (occurrence: None)
  Receive Date: 20111108
  Receipt Date: 20111017
  Transmission Date: 20120403
  Serious: Yes (Other)
  Sender: FDA-Public Use
  Company Number: CA-JNJFOC-20111009895

PATIENT
  Sex: Female
  Weight: 109.9 kg

DRUGS (7)
  1. AMITRIPTYLINE HCL [Concomitant]
     Indication: ANXIETY
  2. RAMIPRIL [Concomitant]
     Indication: HYPERTENSION
  3. REMICADE [Suspect]
     Indication: PSORIASIS
     Dosage: WEEK 0
     Route: 042
     Dates: start: 20110926
  4. SIMVASTATIN [Concomitant]
     Indication: BLOOD CHOLESTEROL INCREASED
  5. BUSPIRONE [Concomitant]
     Indication: ANXIETY
  6. ALPRAZOLAM [Concomitant]
     Indication: ANXIETY
  7. REMICADE [Suspect]
     Dosage: WEEK 2
     Route: 042
     Dates: start: 20111012

REACTIONS (2)
  - HELICOBACTER INFECTION [None]
  - GASTRIC ULCER [None]
